FAERS Safety Report 19263990 (Version 1)
Quarter: 2021Q2

REPORT INFORMATION
  Report Type: Spontaneous
  Country: US (occurrence: US)
  Receive Date: 20210515
  Receipt Date: 20210515
  Transmission Date: 20210717
  Serious: Yes (Other)
  Sender: FDA-Public Use
  Company Number: None

PATIENT
  Age: 66 Year
  Sex: Female
  Weight: 65.25 kg

DRUGS (5)
  1. ESTRADIOL. [Concomitant]
     Active Substance: ESTRADIOL
     Dates: start: 20210503
  2. LEVOTHYROXINE. [Concomitant]
     Active Substance: LEVOTHYROXINE
     Dates: start: 20201208
  3. AMLODIPINE [Concomitant]
     Active Substance: AMLODIPINE BESYLATE
     Dates: start: 20200823
  4. CABOZANTINIB [Suspect]
     Active Substance: CABOZANTINIB
     Indication: RENAL CELL CARCINOMA
     Route: 048
     Dates: start: 20210422, end: 20210502
  5. TRIAMCINOLONE [Concomitant]
     Active Substance: TRIAMCINOLONE
     Dates: start: 20210406

REACTIONS (10)
  - Visual impairment [None]
  - Ocular discomfort [None]
  - Lacrimation increased [None]
  - Visual acuity reduced [None]
  - Optic neuropathy [None]
  - Vitreous floaters [None]
  - Abnormal sensation in eye [None]
  - Optic neuritis [None]
  - Photophobia [None]
  - Papilloedema [None]
